FAERS Safety Report 12957143 (Version 3)
Quarter: 2016Q4

REPORT INFORMATION
  Report Type: Spontaneous
  Country: CA (occurrence: CA)
  Receive Date: 20161118
  Receipt Date: 20161212
  Transmission Date: 20170207
  Serious: Yes (Life-Threatening, Hospitalization)
  Sender: FDA-Public Use
  Company Number: CA-SA-2016SA210152

PATIENT
  Age: 49 Year
  Sex: Male
  Weight: 61.23 kg

DRUGS (3)
  1. LANTUS [Suspect]
     Active Substance: INSULIN GLARGINE
     Indication: DIABETES MELLITUS
     Dosage: DOSE:VARIES
     Route: 058
     Dates: start: 201609
  2. PENICILLIN [Suspect]
     Active Substance: PENICILLIN
     Indication: INFECTION
     Route: 065
     Dates: start: 2016, end: 2016
  3. APIDRA [Suspect]
     Active Substance: INSULIN GLULISINE
     Indication: DIABETES MELLITUS
     Dosage: DOSE:VARIES
     Route: 058
     Dates: start: 201609

REACTIONS (15)
  - Feeling abnormal [Not Recovered/Not Resolved]
  - Limb injury [Recovered/Resolved]
  - Myocardial infarction [Not Recovered/Not Resolved]
  - Pneumonia [Not Recovered/Not Resolved]
  - Off label use [Unknown]
  - Road traffic accident [Unknown]
  - Shock hypoglycaemic [Not Recovered/Not Resolved]
  - Blood glucose increased [Not Recovered/Not Resolved]
  - Drug hypersensitivity [Not Recovered/Not Resolved]
  - Paranoia [Not Recovered/Not Resolved]
  - Blood glucose decreased [Not Recovered/Not Resolved]
  - Drug ineffective [Unknown]
  - Intentional product misuse [Unknown]
  - Localised infection [Recovered/Resolved]
  - Sepsis [Not Recovered/Not Resolved]

NARRATIVE: CASE EVENT DATE: 2016
